FAERS Safety Report 10190184 (Version 1)
Quarter: 2014Q2

REPORT INFORMATION
  Report Type: Spontaneous
  Country: BR (occurrence: BR)
  Receive Date: 20140522
  Receipt Date: 20140522
  Transmission Date: 20141212
  Serious: Yes (Death, Other)
  Sender: FDA-Public Use
  Company Number: BR-ELI_LILLY_AND_COMPANY-BR201405006764

PATIENT
  Age: 63 Year
  Sex: Male

DRUGS (1)
  1. GEMCITABINE HYDROCHLORIDE [Suspect]
     Indication: ADENOCARCINOMA PANCREAS
     Dosage: 1000 MG/M2, OTHER
     Route: 065

REACTIONS (4)
  - Abdominal infection [Fatal]
  - Neoplasm progression [Unknown]
  - Haemolytic uraemic syndrome [Recovered/Resolved with Sequelae]
  - Renal impairment [Not Recovered/Not Resolved]
